FAERS Safety Report 24659375 (Version 1)
Quarter: 2024Q4

REPORT INFORMATION
  Report Type: Spontaneous
  Country: US (occurrence: US)
  Receive Date: 20241125
  Receipt Date: 20241125
  Transmission Date: 20250115
  Serious: No
  Sender: BRISTOL-MYERS SQUIBB COMPANY
  Company Number: US-BRISTOL-MYERS SQUIBB COMPANY-2024-181457

PATIENT
  Age: 86 Year
  Sex: Male
  Weight: 72.9 kg

DRUGS (2)
  1. ELIQUIS [Suspect]
     Active Substance: APIXABAN
     Indication: Atrial fibrillation
     Dosage: TAKE 1 TABLET (2.5MG) BY MOUTH IN THE MORNING AND AT BEDTIME. DISPENSE 180 TABLETS
     Route: 048
     Dates: start: 20240327
  2. VYNDAMAX [Suspect]
     Active Substance: TAFAMIDIS
     Indication: Cardiac amyloidosis
     Dosage: QUANTITY #30 CAPSULES (30 DAYS)
     Route: 048
     Dates: start: 20231013

REACTIONS (1)
  - Fatigue [Unknown]
